FAERS Safety Report 17391658 (Version 3)
Quarter: 2021Q2

REPORT INFORMATION
  Report Type: Spontaneous
  Country: US (occurrence: US)
  Receive Date: 20200207
  Receipt Date: 20210407
  Transmission Date: 20210716
  Serious: Yes (Death, Disabling, Other)
  Sender: FDA-Public Use
  Company Number: US-ASTRAZENECA-2020SE16336

PATIENT
  Age: 47 Year
  Sex: Male
  Weight: 149.7 kg

DRUGS (59)
  1. PROTONIX [Suspect]
     Active Substance: PANTOPRAZOLE SODIUM
     Indication: GASTROOESOPHAGEAL REFLUX DISEASE
     Route: 065
     Dates: start: 2001, end: 2019
  2. PROTONIX [Suspect]
     Active Substance: PANTOPRAZOLE SODIUM
     Indication: GASTROOESOPHAGEAL REFLUX DISEASE
     Dosage: GENERIC
     Route: 065
     Dates: start: 2014
  3. GLIPIZIDE. [Concomitant]
     Active Substance: GLIPIZIDE
  4. CAPTOPRIL. [Concomitant]
     Active Substance: CAPTOPRIL
     Dates: start: 1995, end: 1997
  5. PROMETHAZINE [Concomitant]
     Active Substance: PROMETHAZINE HYDROCHLORIDE
     Dates: start: 1995, end: 1997
  6. JANUVIA [Concomitant]
     Active Substance: SITAGLIPTIN PHOSPHATE
     Dates: start: 1995, end: 1997
  7. VENTOLIN HFA [Concomitant]
     Active Substance: ALBUTEROL SULFATE
     Dates: start: 1995, end: 1997
  8. GAVISCON [Concomitant]
     Active Substance: ALUMINUM HYDROXIDE\MAGNESIUM CARBONATE
     Dates: start: 1995, end: 1997
  9. TRICOR [Concomitant]
     Active Substance: FENOFIBRATE
     Dates: start: 1995, end: 1997
  10. GABAPENTIN. [Concomitant]
     Active Substance: GABAPENTIN
     Dates: start: 1995, end: 1997
  11. HYDRALAZINE [Concomitant]
     Active Substance: HYDRALAZINE HYDROCHLORIDE
     Dates: start: 1995, end: 1997
  12. OMEPRAZOLE. [Suspect]
     Active Substance: OMEPRAZOLE
     Indication: GASTROOESOPHAGEAL REFLUX DISEASE
     Dosage: GENERIC
     Route: 065
  13. CARVEDILOL. [Concomitant]
     Active Substance: CARVEDILOL
  14. PROPOFOL. [Concomitant]
     Active Substance: PROPOFOL
     Dates: start: 1995, end: 1997
  15. IRON [Concomitant]
     Active Substance: IRON
     Indication: ANAEMIA
  16. LAMOTRIGINE. [Concomitant]
     Active Substance: LAMOTRIGINE
  17. TYLENOL [Concomitant]
     Active Substance: ACETAMINOPHEN
     Indication: ANALGESIC THERAPY
     Dates: start: 2016, end: 2020
  18. KLOR?CON [Concomitant]
     Active Substance: POTASSIUM CHLORIDE
     Dates: start: 1995, end: 1997
  19. AVELOX [Concomitant]
     Active Substance: MOXIFLOXACIN HYDROCHLORIDE
     Dates: start: 1995, end: 1997
  20. CLARINEX [Concomitant]
     Active Substance: DESLORATADINE
     Dates: start: 1995, end: 1997
  21. LAMOTRIGINE. [Concomitant]
     Active Substance: LAMOTRIGINE
     Dates: start: 1995, end: 1997
  22. PHENYLEPHRINE [Concomitant]
     Active Substance: PHENYLEPHRINE HYDROCHLORIDE
     Dates: start: 1995, end: 1997
  23. HEPARIN [Concomitant]
     Active Substance: HEPARIN SODIUM
     Dates: start: 1995, end: 1997
  24. NEXIUM [Suspect]
     Active Substance: ESOMEPRAZOLE MAGNESIUM
     Indication: GASTROOESOPHAGEAL REFLUX DISEASE
     Route: 048
     Dates: start: 200103, end: 201912
  25. NEXIUM [Suspect]
     Active Substance: ESOMEPRAZOLE MAGNESIUM
     Indication: GASTROOESOPHAGEAL REFLUX DISEASE
     Dosage: PFS
     Route: 048
     Dates: start: 2001, end: 2019
  26. OMEPRAZOLE. [Suspect]
     Active Substance: OMEPRAZOLE
     Indication: GASTROOESOPHAGEAL REFLUX DISEASE
     Dosage: GENERIC
     Route: 065
     Dates: start: 2010
  27. CETIRIZINE [Concomitant]
     Active Substance: CETIRIZINE HYDROCHLORIDE
     Indication: HYPERSENSITIVITY
     Dates: start: 20110110, end: 20110523
  28. GLIPIZIDE. [Concomitant]
     Active Substance: GLIPIZIDE
     Dates: start: 1995, end: 1997
  29. FLUTICASONE. [Concomitant]
     Active Substance: FLUTICASONE
     Dates: start: 1995, end: 1997
  30. ONDANSETRON [Concomitant]
     Active Substance: ONDANSETRON
     Dates: start: 1995, end: 1997
  31. ZITHROMAX [Concomitant]
     Active Substance: AZITHROMYCIN DIHYDRATE
     Dates: start: 1995, end: 1997
  32. ALLOPURINOL. [Concomitant]
     Active Substance: ALLOPURINOL
     Indication: HYPERURICAEMIA
  33. ROCALTROL [Concomitant]
     Active Substance: CALCITRIOL
     Indication: HYPERPARATHYROIDISM SECONDARY
  34. KEPPRA [Concomitant]
     Active Substance: LEVETIRACETAM
  35. BUMETANIDE. [Concomitant]
     Active Substance: BUMETANIDE
     Dates: start: 1995, end: 1997
  36. CLONIDINE. [Concomitant]
     Active Substance: CLONIDINE
     Dates: start: 1995, end: 1997
  37. CISATRACURIUM. [Concomitant]
     Active Substance: CISATRACURIUM
     Dates: start: 1995, end: 1997
  38. FENTANYL. [Concomitant]
     Active Substance: FENTANYL
     Dates: start: 1995, end: 1997
  39. PROTONIX [Suspect]
     Active Substance: PANTOPRAZOLE SODIUM
     Indication: GASTROOESOPHAGEAL REFLUX DISEASE
     Dosage: GENERIC
     Route: 065
     Dates: start: 20190108
  40. ERGOCALCIFEROL. [Concomitant]
     Active Substance: ERGOCALCIFEROL
     Indication: VITAMIN D DEFICIENCY
  41. ALLOPURINOL. [Concomitant]
     Active Substance: ALLOPURINOL
     Indication: GOUT
     Dates: start: 2011, end: 2020
  42. LAMOTRIGINE. [Concomitant]
     Active Substance: LAMOTRIGINE
     Dates: start: 1995, end: 1997
  43. FEXOFENADINE [Concomitant]
     Active Substance: FEXOFENADINE HYDROCHLORIDE
     Dates: start: 1995, end: 1997
  44. NIFEDIPINE. [Concomitant]
     Active Substance: NIFEDIPINE
     Dates: start: 1995, end: 1997
  45. FUROSEMIDE. [Concomitant]
     Active Substance: FUROSEMIDE
     Dates: start: 1995, end: 1997
  46. PROTONIX [Suspect]
     Active Substance: PANTOPRAZOLE SODIUM
     Indication: GASTROOESOPHAGEAL REFLUX DISEASE
     Route: 065
     Dates: start: 200103, end: 201912
  47. TORESEMIDE [Concomitant]
     Active Substance: TORSEMIDE
     Indication: OEDEMA
  48. ACETAMINOPHEN. [Concomitant]
     Active Substance: ACETAMINOPHEN
  49. CLONIDINE. [Concomitant]
     Active Substance: CLONIDINE
  50. GABAPENTIN. [Concomitant]
     Active Substance: GABAPENTIN
  51. HYDRALAZINE [Concomitant]
     Active Substance: HYDRALAZINE HYDROCHLORIDE
  52. NORCO [Concomitant]
     Active Substance: ACETAMINOPHEN\HYDROCODONE BITARTRATE
  53. LYRICA [Concomitant]
     Active Substance: PREGABALIN
     Indication: ANALGESIC THERAPY
     Dates: start: 20110103, end: 20110804
  54. AZITHROMYCIN ANHYDROUS. [Concomitant]
     Active Substance: AZITHROMYCIN ANHYDROUS
     Indication: ANTIBIOTIC THERAPY
     Dates: start: 20110110, end: 20120515
  55. LEVAQUIN [Concomitant]
     Active Substance: LEVOFLOXACIN
     Dates: start: 1995, end: 1997
  56. HYDROCHLORITHIAZIDE [Concomitant]
     Active Substance: HYDROCHLOROTHIAZIDE
     Dates: start: 1995, end: 1997
  57. DIGOXIN. [Concomitant]
     Active Substance: DIGOXIN
     Dates: start: 1995, end: 1997
  58. LOSARTAN. [Concomitant]
     Active Substance: LOSARTAN
     Dates: start: 1995, end: 1997
  59. METOPROLOL. [Concomitant]
     Active Substance: METOPROLOL
     Dates: start: 1995, end: 1997

REACTIONS (5)
  - Chronic kidney disease [Not Recovered/Not Resolved]
  - End stage renal disease [Not Recovered/Not Resolved]
  - Hyperparathyroidism secondary [Unknown]
  - Acute kidney injury [Unknown]
  - Renal failure [Unknown]

NARRATIVE: CASE EVENT DATE: 2010
